FAERS Safety Report 6136781-9 (Version None)
Quarter: 2009Q1

REPORT INFORMATION
  Report Type: 
  Country: None (occurrence: None)
  Receive Date: 20090330
  Receipt Date: 20090320
  Transmission Date: 20090719
  Serious: Yes (Other)
  Sender: FDA-Public Use
  Company Number: IN-ABBOTT-09P-078-0563596-00

PATIENT
  Age: 5 Year
  Sex: Male

DRUGS (3)
  1. VALPROATE SODIUM [Suspect]
     Indication: SIMPLE PARTIAL SEIZURES
     Route: 065
  2. CARBAMAZEPINE [Concomitant]
     Indication: SIMPLE PARTIAL SEIZURES
     Route: 065
  3. CLOBAZAM [Concomitant]
     Indication: DRUG USE FOR UNKNOWN INDICATION

REACTIONS (3)
  - HYPERAMMONAEMIA [None]
  - METABOLIC ENCEPHALOPATHY [None]
  - MOOD ALTERED [None]
